FAERS Safety Report 11176615 (Version 1)
Quarter: 2015Q2

REPORT INFORMATION
  Report Type: Spontaneous
  Country: JP (occurrence: None)
  Receive Date: 20150608
  Receipt Date: 20150608
  Transmission Date: 20150821
  Serious: Yes (Other)
  Sender: FDA-Public Use
  Company Number: 1620604

PATIENT
  Age: 72 Year
  Sex: Male
  Weight: 53.98 kg

DRUGS (8)
  1. SENNOSIDE [Concomitant]
     Active Substance: SENNOSIDES
  2. [HENYTOIN SODIUM (NON-SPECIFIC) [Suspect]
     Active Substance: PHENYTOIN SODIUM
     Indication: EPILEPSY
  3. CHEMOTHERAPY [Concomitant]
     Active Substance: UNSPECIFIED INGREDIENT
  4. PRAVASTATIN [Concomitant]
     Active Substance: PRAVASTATIN\PRAVASTATIN SODIUM
  5. MAGNESIUM OXIDE. [Concomitant]
     Active Substance: MAGNESIUM OXIDE
  6. DIGESTIVE ENZYME COMPLEXES [Concomitant]
  7. GIMERACIL/OTERACIL/TEGAGUR [Suspect]
     Active Substance: GIMERACIL\OTERACIL\TEGAFUR
     Indication: GASTRIC CANCER
     Dates: start: 20100609, end: 201009
  8. ITOPRIDE [Concomitant]
     Active Substance: ITOPRIDE

REACTIONS (6)
  - Toxicity to various agents [None]
  - Drug level increased [None]
  - Fall [None]
  - Leukopenia [None]
  - Dizziness [None]
  - Drug interaction [None]
